FAERS Safety Report 9935939 (Version 2)
Quarter: 2014Q1

REPORT INFORMATION
  Report Type: Spontaneous
  Country: US (occurrence: US)
  Receive Date: 20140228
  Receipt Date: 20140228
  Transmission Date: 20141002
  Serious: No
  Sender: FDA-Public Use
  Company Number: US-AMGEN-USASP2013069395

PATIENT
  Age: 70 Year
  Sex: Female

DRUGS (1)
  1. ENBREL [Suspect]
     Indication: RHEUMATOID ARTHRITIS
     Dosage: 50 MG, QWK
     Route: 058
     Dates: start: 20130913

REACTIONS (11)
  - Headache [Unknown]
  - Rash [Unknown]
  - Erythema [Unknown]
  - Pruritus [Unknown]
  - Joint swelling [Unknown]
  - Malaise [Unknown]
  - Pain [Unknown]
  - Nausea [Unknown]
  - Vertigo [Unknown]
  - Grip strength decreased [Unknown]
  - Ear infection [Recovered/Resolved]
